FAERS Safety Report 5645583-9 (Version None)
Quarter: 2008Q1

REPORT INFORMATION
  Report Type: 
  Country: None (occurrence: None)
  Receive Date: 20080229
  Receipt Date: 20080225
  Transmission Date: 20080703
  Serious: Yes (Other)
  Sender: FDA-Public Use
  Company Number: JP-BAYER-200810348BYL

PATIENT
  Age: 79 Year
  Sex: Male

DRUGS (1)
  1. MAGNEVIST [Suspect]
     Indication: PROSTATE CANCER
     Dosage: TOTAL DAILY DOSE: 12 ML  UNIT DOSE: 15 ML
     Route: 042
     Dates: start: 20080221, end: 20080221

REACTIONS (4)
  - ANAPHYLACTIC SHOCK [None]
  - ERYTHEMA [None]
  - LOSS OF CONSCIOUSNESS [None]
  - PRURITUS [None]
